FAERS Safety Report 26023993 (Version 1)
Quarter: 2025Q4

REPORT INFORMATION
  Report Type: Spontaneous
  Country: US (occurrence: US)
  Receive Date: 20251111
  Receipt Date: 20251111
  Transmission Date: 20260118
  Serious: No
  Sender: AVERITAS
  Company Number: US-GRUNENTHAL-2025-124657

PATIENT
  Age: 42 Year
  Sex: Female

DRUGS (1)
  1. QUTENZA [Suspect]
     Active Substance: CAPSAICIN
     Indication: Diabetic neuropathy
     Dosage: UNK UNK, ONCE
     Route: 065
     Dates: start: 20251104, end: 20251104

REACTIONS (2)
  - Application site burn [Unknown]
  - Application site rash [Unknown]
